FAERS Safety Report 16057813 (Version 1)
Quarter: 2019Q1

REPORT INFORMATION
  Report Type: Spontaneous
  Country: FR (occurrence: FR)
  Receive Date: 20190311
  Receipt Date: 20190311
  Transmission Date: 20190418
  Serious: Yes (Hospitalization)
  Sender: FDA-Public Use
  Company Number: FR-MYLANLABS-2019M1020627

PATIENT
  Age: 14 Year
  Sex: Male

DRUGS (3)
  1. LEVETIRACETAM. [Concomitant]
     Active Substance: LEVETIRACETAM
     Indication: CEREBRAL VENOUS THROMBOSIS
     Route: 065
  2. GABAPENTIN. [Concomitant]
     Active Substance: GABAPENTIN
     Indication: CEREBRAL VENOUS THROMBOSIS
     Route: 065
  3. METHOTREXATE. [Suspect]
     Active Substance: METHOTREXATE
     Indication: ACUTE LYMPHOCYTIC LEUKAEMIA
     Dosage: 5 G/M2 (HIGH-DOSE)
     Route: 065

REACTIONS (16)
  - Folliculitis [Recovered/Resolved]
  - Cholestasis [Recovered/Resolved]
  - Cheilitis [Recovered/Resolved]
  - Enteritis [Recovered/Resolved]
  - Prothrombin time shortened [Recovered/Resolved]
  - Dermatitis exfoliative generalised [Recovered/Resolved]
  - Thrombocytopenia [Recovered/Resolved]
  - Liver abscess [Recovered/Resolved]
  - Bone marrow failure [Recovered/Resolved]
  - Rectal ulcer [Recovered/Resolved]
  - Pruritus [Recovered/Resolved]
  - Hyperfibrinogenaemia [Recovered/Resolved]
  - Mucosal inflammation [Recovered/Resolved]
  - Diarrhoea [Recovered/Resolved]
  - Gastrointestinal viral infection [Recovered/Resolved]
  - Anal haemorrhage [Recovered/Resolved]
